FAERS Safety Report 6073248-0 (Version None)
Quarter: 2009Q1

REPORT INFORMATION
  Report Type: 
  Country: None (occurrence: None)
  Receive Date: 20090211
  Receipt Date: 20081222
  Transmission Date: 20090719
  Serious: No
  Sender: FDA-Public Use
  Company Number: A0761212A

PATIENT
  Age: 68 Year
  Sex: Female

DRUGS (2)
  1. ALTABAX [Suspect]
     Dosage: 10MG PER DAY
     Route: 061
     Dates: start: 20081218, end: 20081219
  2. CLINDAMYCIN HCL [Concomitant]

REACTIONS (2)
  - APPLICATION SITE ERYTHEMA [None]
  - APPLICATION SITE PAIN [None]
